FAERS Safety Report 4780017-8 (Version None)
Quarter: 2005Q3

REPORT INFORMATION
  Report Type: 
  Country: None (occurrence: None)
  Receive Date: 20050927
  Receipt Date: 20050519
  Transmission Date: 20060218
  Serious: Yes (Other)
  Sender: FDA-Public Use
  Company Number: PHEH2005US06008

PATIENT

DRUGS (1)
  1. ENABLEX [Suspect]

REACTIONS (2)
  - COLOSTOMY [None]
  - CONSTIPATION [None]
